FAERS Safety Report 7222814-5 (Version None)
Quarter: 2011Q1

REPORT INFORMATION
  Report Type: 
  Country: None (occurrence: None)
  Receive Date: 20110112
  Receipt Date: 20110111
  Transmission Date: 20110831
  Serious: Yes (Disabling)
  Sender: FDA-Public Use
  Company Number: PT-PFIZER INC-2010137414

PATIENT
  Age: 64 Year
  Sex: Female
  Weight: 65 kg

DRUGS (5)
  1. ZARATOR [Suspect]
     Dosage: 40 MG, 1X/DAY
     Route: 048
  2. BETAHISTINE [Concomitant]
     Dosage: 24 MG, UNK
     Route: 048
  3. LORAZEPAM [Concomitant]
     Dosage: 2.5 MG, UNK
     Route: 048
  4. GLUCOMED [Concomitant]
     Dosage: 625 MG, UNK
     Route: 048
  5. OMEPRAZOL ^STADA^ [Concomitant]
     Dosage: 20 MG, UNK
     Route: 048

REACTIONS (2)
  - PRODUCT FORMULATION ISSUE [None]
  - HEADACHE [None]
